FAERS Safety Report 10102864 (Version 2)
Quarter: 2014Q2

REPORT INFORMATION
  Report Type: Other
  Country: US (occurrence: US)
  Receive Date: 20140424
  Receipt Date: 20140610
  Transmission Date: 20141212
  Serious: Yes (Hospitalization, Other)
  Sender: FDA-Public Use
  Company Number: US-GSKPPD-2014GSK000182

PATIENT
  Sex: Male
  Weight: 91.25 kg

DRUGS (6)
  1. AVANDIA [Suspect]
     Indication: DIABETES MELLITUS
     Route: 048
     Dates: start: 20040710, end: 20080725
  2. AVANDAMET [Suspect]
     Indication: DIABETES MELLITUS
     Dosage: 2MG/500MG
     Route: 048
     Dates: start: 20030515
  3. ASPIRIN [Concomitant]
     Route: 048
  4. TENEX [Concomitant]
     Route: 048
  5. METOPROLOL [Concomitant]
     Route: 048
  6. LOTENSIN [Concomitant]
     Route: 048

REACTIONS (1)
  - Myocardial infarction [None]
